FAERS Safety Report 13538873 (Version 1)
Quarter: 2017Q2

REPORT INFORMATION
  Report Type: Spontaneous
  Country: US (occurrence: US)
  Receive Date: 20170511
  Receipt Date: 20170511
  Transmission Date: 20170830
  Serious: No
  Sender: FDA-Public Use
  Company Number: None

PATIENT
  Age: 51 Year
  Sex: Female

DRUGS (12)
  1. OCALIVA [Suspect]
     Active Substance: OBETICHOLIC ACID
     Indication: BILIARY CIRRHOSIS PRIMARY
     Route: 048
     Dates: start: 20170321
  2. LANTUS [Concomitant]
     Active Substance: INSULIN GLARGINE
  3. KLONOPIN [Concomitant]
     Active Substance: CLONAZEPAM
  4. HUMALOG [Concomitant]
     Active Substance: INSULIN LISPRO
  5. DICYCLOMINE [Concomitant]
     Active Substance: DICYCLOMINE HYDROCHLORIDE
  6. LEVOTHYROXINE. [Concomitant]
     Active Substance: LEVOTHYROXINE
  7. AMITIZA [Concomitant]
     Active Substance: LUBIPROSTONE
  8. LIPITOR [Concomitant]
     Active Substance: ATORVASTATIN CALCIUM
  9. NOVOLOG [Concomitant]
     Active Substance: INSULIN ASPART
  10. URSIDOL [Concomitant]
  11. TRAZODONE [Concomitant]
     Active Substance: TRAZODONE HYDROCHLORIDE
  12. ATORVASTATIN [Concomitant]
     Active Substance: ATORVASTATIN

REACTIONS (1)
  - Pruritus [None]
